FAERS Safety Report 12372595 (Version 3)
Quarter: 2016Q2

REPORT INFORMATION
  Report Type: Spontaneous
  Country: US (occurrence: US)
  Receive Date: 20160516
  Receipt Date: 20160610
  Transmission Date: 20160815
  Serious: No
  Sender: FDA-Public Use
  Company Number: US-PFIZER INC-2016257869

PATIENT
  Age: 73 Year
  Sex: Female
  Weight: 61 kg

DRUGS (1)
  1. PREMARIN [Suspect]
     Active Substance: ESTROGENS, CONJUGATED
     Indication: BLADDER OPERATION
     Dosage: UNK

REACTIONS (5)
  - Vulvovaginal pruritus [Unknown]
  - Vaginal infection [Recovered/Resolved]
  - Wrong technique in product usage process [Unknown]
  - Vulvovaginal burning sensation [Unknown]
  - Product use issue [Unknown]
